FAERS Safety Report 20033846 (Version 2)
Quarter: 2022Q2

REPORT INFORMATION
  Report Type: Spontaneous
  Country: US (occurrence: US)
  Receive Date: 20211104
  Receipt Date: 20220427
  Transmission Date: 20220721
  Serious: No
  Sender: FDA-Public Use
  Company Number: US-PFIZER INC-202101441222

PATIENT
  Age: 64 Year
  Sex: Female
  Weight: 154.19 kg

DRUGS (1)
  1. IBRANCE [Suspect]
     Active Substance: PALBOCICLIB
     Indication: Breast cancer female
     Dosage: 125 MG, CYCLIC (1 DAILY FOR 21 DAYS/1 TABLET DAILY TAKE WITH OR WITHOUT FOOD ON DAYS 1 THROUGH 21)
     Route: 048
     Dates: start: 20210928

REACTIONS (4)
  - Hot flush [Unknown]
  - Body temperature increased [Unknown]
  - Fatigue [Not Recovered/Not Resolved]
  - Diarrhoea [Not Recovered/Not Resolved]
